FAERS Safety Report 23188138 (Version 2)
Quarter: 2023Q4

REPORT INFORMATION
  Report Type: Spontaneous
  Country: SI (occurrence: SI)
  Receive Date: 20231115
  Receipt Date: 20231127
  Transmission Date: 20240110
  Serious: Yes (Hospitalization, Other)
  Sender: FDA-Public Use
  Company Number: SI-009507513-2311SVN004590

PATIENT
  Age: 69 Year
  Sex: Female

DRUGS (5)
  1. PEMBROLIZUMAB [Suspect]
     Active Substance: PEMBROLIZUMAB
     Indication: Lung neoplasm malignant
     Dosage: UNK
     Dates: start: 202211, end: 202211
  2. CARBOPLATIN [Suspect]
     Active Substance: CARBOPLATIN
     Dosage: UNK
     Dates: start: 202210, end: 202211
  3. PEMETREXED [Suspect]
     Active Substance: PEMETREXED
     Dosage: UNK
     Dates: start: 202210, end: 202211
  4. EUTHYROX [Concomitant]
     Active Substance: LEVOTHYROXINE SODIUM
     Indication: Hypothyroidism
     Dosage: UNKNOWN
  5. CEFUROXIME [Concomitant]
     Active Substance: CEFUROXIME

REACTIONS (5)
  - Immune-mediated renal disorder [Recovering/Resolving]
  - Malignant neoplasm progression [Not Recovered/Not Resolved]
  - Hypokalaemia [Unknown]
  - Pyrexia [Unknown]
  - Axillary pain [Unknown]

NARRATIVE: CASE EVENT DATE: 20221101
